FAERS Safety Report 5842881-0 (Version None)
Quarter: 2008Q3

REPORT INFORMATION
  Report Type: 
  Country: None (occurrence: None)
  Receive Date: 20080731
  Receipt Date: 20080502
  Transmission Date: 20090109
  Serious: No
  Sender: FDA-Public Use
  Company Number: US200801004199

PATIENT
  Age: 67 Year
  Sex: Female
  Weight: 99.8 kg

DRUGS (23)
  1. BYETTA [Suspect]
     Dosage: SEE IMAGE
     Route: 058
     Dates: start: 20060101, end: 20060101
  2. BYETTA [Suspect]
     Dosage: SEE IMAGE
     Route: 058
     Dates: start: 20070201, end: 20070301
  3. BYETTA [Suspect]
     Dosage: SEE IMAGE
     Route: 058
     Dates: start: 20060101
  4. BYETTA [Suspect]
     Dosage: SEE IMAGE
     Route: 058
     Dates: start: 20070301
  5. METFORMIN HCL [Concomitant]
  6. RESTASIS (CICLOSPORIN) [Concomitant]
  7. BUMEX [Concomitant]
  8. AGGRENOX [Concomitant]
  9. TOPAMAX [Concomitant]
  10. ZETIA [Concomitant]
  11. TRICOR [Concomitant]
  12. TOPROL-XL [Concomitant]
  13. SOMA [Concomitant]
  14. POTASSIUM CHLORIDE [Concomitant]
  15. ACIPHEX [Concomitant]
  16. AMITRIPTLINE HYDROCHLORIDE TAB [Concomitant]
  17. DARVOCET [Concomitant]
  18. LEVOTHROID [Concomitant]
  19. ZOLPIDEM TARTRATE [Concomitant]
  20. MULTIVITAMIN [Concomitant]
  21. GLUCOSAMINE (GLUCOSAMINE) [Concomitant]
  22. CITRACAL (CALCIUM CITRATE) [Concomitant]
  23. EXENATIDE PEN, DISPOSABLE DEVICE (EXENATIDE PEN)) PEN, DISPOSABLE [Concomitant]

REACTIONS (4)
  - FOOT FRACTURE [None]
  - LOCALISED INFECTION [None]
  - LOWER RESPIRATORY TRACT INFECTION [None]
  - WEIGHT DECREASED [None]
